FAERS Safety Report 17508073 (Version 1)
Quarter: 2020Q1

REPORT INFORMATION
  Report Type: Spontaneous
  Country: CA (occurrence: CA)
  Receive Date: 20200306
  Receipt Date: 20200306
  Transmission Date: 20200409
  Serious: Yes (Other)
  Sender: FDA-Public Use
  Company Number: CA-CELLTRION INC.-2020CA019867

PATIENT

DRUGS (4)
  1. TOFACITINIB [Concomitant]
     Active Substance: TOFACITINIB
     Dosage: UNK
     Route: 065
  2. HUMIRA [Suspect]
     Active Substance: ADALIMUMAB
     Dosage: UNK
     Route: 058
  3. VEDOLIZUMAB [Suspect]
     Active Substance: VEDOLIZUMAB
     Dosage: UNK
     Route: 065
  4. INFLIXIMAB PFIZER (UNKNOWN) [Suspect]
     Active Substance: INFLIXIMAB
     Dosage: UNK [1 EVERY 4 WEEKS]

REACTIONS (6)
  - Colitis ulcerative [Unknown]
  - Mucous stools [Unknown]
  - Haematochezia [Unknown]
  - Drug ineffective [Unknown]
  - Frequent bowel movements [Unknown]
  - Muscle spasms [Unknown]
